FAERS Safety Report 8228783-3 (Version None)
Quarter: 2012Q1

REPORT INFORMATION
  Report Type: 
  Country: None (occurrence: None)
  Receive Date: 20120322
  Receipt Date: 20120316
  Transmission Date: 20120608
  Serious: Yes (Hospitalization, Congenital Anomaly)
  Sender: FDA-Public Use
  Company Number: US-GLAXOSMITHKLINE-A0951261A

PATIENT
  Sex: Male

DRUGS (2)
  1. PAXIL [Suspect]
     Indication: ANXIETY
     Dosage: 20MG PER DAY
     Route: 064
     Dates: start: 19950101, end: 20000101
  2. MULTI-VITAMINS [Concomitant]
     Route: 064

REACTIONS (10)
  - TOURETTE'S DISORDER [None]
  - SPEECH DISORDER DEVELOPMENTAL [None]
  - FINE MOTOR DELAY [None]
  - ATTENTION DEFICIT/HYPERACTIVITY DISORDER [None]
  - FOETAL EXPOSURE DURING PREGNANCY [None]
  - ANOMALOUS PULMONARY VENOUS CONNECTION [None]
  - DRUG WITHDRAWAL SYNDROME [None]
  - ANXIETY [None]
  - PULMONARY HYPERTENSION [None]
  - LEARNING DISABILITY [None]
